FAERS Safety Report 7620616-9 (Version None)
Quarter: 2011Q3

REPORT INFORMATION
  Report Type: 
  Country: None (occurrence: None)
  Receive Date: 20110719
  Receipt Date: 20110706
  Transmission Date: 20111222
  Serious: Yes (Other)
  Sender: FDA-Public Use
  Company Number: AU-ROCHE-790441

PATIENT
  Age: 30 Year
  Sex: Female

DRUGS (6)
  1. DIAZEPAM [Suspect]
     Route: 065
  2. THC [Interacting]
     Route: 065
  3. METHAMPHETAMINE HYDROCHLORIDE [Interacting]
     Route: 065
  4. TRAMADOL HCL [Interacting]
     Route: 065
  5. NORDIAZEPAM [Interacting]
     Route: 065
  6. METHYLENEDIOXYMETHAMPHETAMINE [Interacting]
     Route: 065

REACTIONS (1)
  - DRUG INTERACTION [None]
